FAERS Safety Report 19785421 (Version 2)
Quarter: 2021Q3

REPORT INFORMATION
  Report Type: Spontaneous
  Country: JP (occurrence: JP)
  Receive Date: 20210903
  Receipt Date: 20210921
  Transmission Date: 20211014
  Serious: Yes (Other)
  Sender: FDA-Public Use
  Company Number: JP-MYLANLABS-2021M1056921

PATIENT
  Age: 47 Year
  Sex: Male

DRUGS (2)
  1. CEFMETAZOLE [Suspect]
     Active Substance: CEFMETAZOLE
     Indication: ENTEROCOLITIS BACTERIAL
     Route: 065
  2. ACELIO [Suspect]
     Active Substance: ACETAMINOPHEN
     Indication: ENTEROCOLITIS BACTERIAL
     Route: 065

REACTIONS (1)
  - Drug reaction with eosinophilia and systemic symptoms [Recovering/Resolving]
